FAERS Safety Report 10914415 (Version 1)
Quarter: 2015Q1

REPORT INFORMATION
  Report Type: Spontaneous
  Country: US (occurrence: US)
  Receive Date: 20150313
  Receipt Date: 20150313
  Transmission Date: 20150721
  Serious: No
  Sender: FDA-Public Use
  Company Number: US-GLAXOSMITHKLINE-US2015024928

PATIENT
  Age: 13 Year
  Sex: Female

DRUGS (1)
  1. LAMOTRIGINE. [Suspect]
     Active Substance: LAMOTRIGINE
     Indication: EPILEPSY
     Dosage: 200 MG, BID
     Route: 048
     Dates: start: 200902, end: 200912

REACTIONS (6)
  - Dyskinesia [Recovered/Resolved]
  - Depressed mood [Recovered/Resolved]
  - Nausea [Recovered/Resolved]
  - Diplopia [Recovered/Resolved]
  - Vomiting [Recovered/Resolved]
  - Drug ineffective [Recovered/Resolved]

NARRATIVE: CASE EVENT DATE: 20090601
